FAERS Safety Report 8435397-9 (Version None)
Quarter: 2012Q2

REPORT INFORMATION
  Report Type: 
  Country: None (occurrence: None)
  Receive Date: 20120614
  Receipt Date: 20120612
  Transmission Date: 20120825
  Serious: Yes (Other)
  Sender: FDA-Public Use
  Company Number: PHEH2012US011558

PATIENT
  Sex: Female
  Weight: 78.005 kg

DRUGS (6)
  1. COPLAXAR [Concomitant]
     Dosage: UNK UKN, UNK
  2. GILENYA [Suspect]
     Indication: MULTIPLE SCLEROSIS
     Dosage: 0.5 MG, QD
     Route: 048
     Dates: start: 20120606
  3. AMBIEN [Concomitant]
     Dosage: UNK UKN, UNK
  4. EFFEXOR XR [Concomitant]
     Indication: DEPRESSION
     Dosage: UNK UKN, UNK
  5. VITAMINS NOS [Concomitant]
     Dosage: UNK UKN, UNK
  6. BUSPAR [Concomitant]
     Dosage: UNK UKN, UNK

REACTIONS (6)
  - DIZZINESS [None]
  - FATIGUE [None]
  - NAUSEA [None]
  - DISTURBANCE IN ATTENTION [None]
  - SUICIDAL IDEATION [None]
  - INCREASED APPETITE [None]
